FAERS Safety Report 7320430-8 (Version None)
Quarter: 2011Q1

REPORT INFORMATION
  Report Type: 
  Country: None (occurrence: None)
  Receive Date: 20110228
  Receipt Date: 20110222
  Transmission Date: 20110831
  Serious: Yes (Other)
  Sender: FDA-Public Use
  Company Number: A0914895A

PATIENT
  Age: 23 Year
  Sex: Female

DRUGS (3)
  1. LAMICTAL [Suspect]
     Indication: EPILEPSY
     Route: 048
  2. IBUPROFEN [Concomitant]
  3. DEPAKOTE [Concomitant]

REACTIONS (6)
  - HEADACHE [None]
  - NAUSEA [None]
  - EUPHORIC MOOD [None]
  - DIZZINESS [None]
  - DISORIENTATION [None]
  - CONVULSION [None]
